FAERS Safety Report 22350448 (Version 1)
Quarter: 2023Q2

REPORT INFORMATION
  Report Type: Spontaneous
  Country: US (occurrence: None)
  Receive Date: 20230520
  Receipt Date: 20230520
  Transmission Date: 20230721
  Serious: No
  Sender: FDA-Public Use
  Company Number: None

PATIENT
  Age: 72 Year
  Sex: Female

DRUGS (1)
  1. FLUTICASONE PROPIONATE [Suspect]
     Active Substance: FLUTICASONE PROPIONATE
     Indication: Sinusitis
     Dosage: FREQUENCY : TWICE A DAY;?
     Route: 055
     Dates: start: 20230224, end: 20230226

REACTIONS (2)
  - Headache [None]
  - Therapy cessation [None]

NARRATIVE: CASE EVENT DATE: 20230224
